FAERS Safety Report 15618626 (Version 1)
Quarter: 2018Q4

REPORT INFORMATION
  Report Type: Spontaneous
  Country: US (occurrence: US)
  Receive Date: 20181114
  Receipt Date: 20181114
  Transmission Date: 20190205
  Serious: Yes (Death)
  Sender: FDA-Public Use
  Company Number: US-HAEMONETICS CORP-2058865

PATIENT
  Age: 62 Year
  Sex: Male
  Weight: 74.09 kg

DRUGS (1)
  1. HAEMONETICS ANTICOAGULANT SODIUM CITRATE [Suspect]
     Active Substance: TRISODIUM CITRATE DIHYDRATE
     Route: 042
     Dates: start: 20181019, end: 20181019

REACTIONS (1)
  - Death [Fatal]

NARRATIVE: CASE EVENT DATE: 20181022
